FAERS Safety Report 8018047-5 (Version None)
Quarter: 2012Q1

REPORT INFORMATION
  Report Type: 
  Country: None (occurrence: None)
  Receive Date: 20120103
  Receipt Date: 20111227
  Transmission Date: 20120608
  Serious: Yes (Hospitalization)
  Sender: FDA-Public Use
  Company Number: FR-JNJFOC-20111202319

PATIENT
  Sex: Male

DRUGS (7)
  1. LEPTICUR [Suspect]
     Indication: TREMOR
     Route: 048
  2. LEPTICUR [Suspect]
     Route: 048
  3. SULPIRIDE [Suspect]
     Indication: PRODUCT USED FOR UNKNOWN INDICATION
     Route: 048
  4. RISPERDAL [Suspect]
     Route: 065
  5. RISPERDAL [Suspect]
     Indication: PSYCHOTIC DISORDER
     Route: 065
  6. RISPERDAL [Suspect]
     Route: 065
  7. ZYPREXA [Suspect]
     Indication: PSYCHOTIC DISORDER
     Route: 048

REACTIONS (3)
  - RENAL FAILURE ACUTE [None]
  - COMA [None]
  - RHABDOMYOLYSIS [None]
